FAERS Safety Report 9633227 (Version 1)
Quarter: 2013Q4

REPORT INFORMATION
  Report Type: Spontaneous
  Country: US (occurrence: None)
  Receive Date: 20131018
  Receipt Date: 20131018
  Transmission Date: 20140711
  Serious: No
  Sender: FDA-Public Use
  Company Number: None

PATIENT
  Age: 30 Year
  Sex: Female
  Weight: 56.7 kg

DRUGS (10)
  1. PANTOPRAZOLE [Suspect]
     Indication: GASTROOESOPHAGEAL REFLUX DISEASE
     Route: 048
     Dates: start: 20130923, end: 20131013
  2. DULERA [Concomitant]
  3. FLONASE [Concomitant]
  4. ALLEGRA [Concomitant]
  5. METHOTREXATE [Concomitant]
  6. FOLIC ACID [Concomitant]
  7. YAZ [Concomitant]
  8. PANTOPRAZOLE [Concomitant]
  9. DAILY MULTI-VITAMIN [Concomitant]
  10. FLAXSEED OIL [Concomitant]

REACTIONS (6)
  - Dyspepsia [None]
  - Abdominal pain upper [None]
  - Cough [None]
  - Asthma [None]
  - Drug ineffective [None]
  - Product substitution issue [None]
